FAERS Safety Report 9065669 (Version 1)
Quarter: 2013Q1

REPORT INFORMATION
  Report Type: Report from Study
  Country: UA (occurrence: UA)
  Receive Date: 20130214
  Receipt Date: 20130214
  Transmission Date: 20140127
  Serious: Yes (Hospitalization, Disabling)
  Sender: FDA-Public Use
  Company Number: UA-JNJFOC-20061202076

PATIENT
  Age: 65 None
  Sex: Female
  Weight: 63.8 kg

DRUGS (14)
  1. GOLIMUMAB [Suspect]
     Indication: RHEUMATOID ARTHRITIS
     Route: 058
     Dates: start: 20060907
  2. GOLIMUMAB [Suspect]
     Indication: RHEUMATOID ARTHRITIS
     Route: 058
     Dates: start: 20060810
  3. GOLIMUMAB [Suspect]
     Indication: RHEUMATOID ARTHRITIS
     Route: 058
     Dates: start: 20060713
  4. METHOTREXATE [Suspect]
     Indication: RHEUMATOID ARTHRITIS
     Dosage: 4 CAPSULES WEEK 3
     Route: 048
     Dates: start: 20060807
  5. METHOTREXATE [Suspect]
     Indication: RHEUMATOID ARTHRITIS
     Dosage: 4 CAPSULES WEEK 4
     Route: 048
     Dates: start: 20060814
  6. METHOTREXATE [Suspect]
     Indication: RHEUMATOID ARTHRITIS
     Dosage: 4 CAPSULES WEEK 5
     Route: 048
     Dates: start: 20060821
  7. METHOTREXATE [Suspect]
     Indication: RHEUMATOID ARTHRITIS
     Dosage: 4 CAPSULES WEEK 6
     Route: 048
     Dates: start: 20060828
  8. METHOTREXATE [Suspect]
     Indication: RHEUMATOID ARTHRITIS
     Dosage: 4 CAPSULES WEEK 0
     Route: 048
     Dates: start: 20060717
  9. METHOTREXATE [Suspect]
     Indication: RHEUMATOID ARTHRITIS
     Dosage: 4 CAPSULES WEEK 2
     Route: 048
     Dates: start: 20060731
  10. METHOTREXATE [Suspect]
     Indication: RHEUMATOID ARTHRITIS
     Dosage: 4 CAPSULES WEEK 1
     Route: 048
     Dates: start: 20060724
  11. METHOTREXATE [Suspect]
     Indication: RHEUMATOID ARTHRITIS
     Dosage: 4 CAPSULES WEEK 7
     Route: 048
     Dates: start: 20060904
  12. TRIAMCINILON [Concomitant]
     Route: 048
     Dates: start: 20060317
  13. NIMESULID [Concomitant]
     Route: 048
     Dates: start: 20060317
  14. FOLIC ACID [Concomitant]
     Route: 048
     Dates: start: 20060719

REACTIONS (3)
  - Bone tuberculosis [Recovered/Resolved]
  - Neurogenic bladder [Recovered/Resolved]
  - Monoparesis [Recovered/Resolved]
